FAERS Safety Report 10187412 (Version 1)
Quarter: 2014Q2

REPORT INFORMATION
  Report Type: Spontaneous
  Country: FR (occurrence: FR)
  Receive Date: 20140522
  Receipt Date: 20140522
  Transmission Date: 20141212
  Serious: Yes (Other)
  Sender: FDA-Public Use
  Company Number: FR-TEVA-480342ISR

PATIENT
  Age: 55 Year
  Sex: 0

DRUGS (1)
  1. COPAXONE [Suspect]
     Dosage: FOR 4 OR 5 YEARS

REACTIONS (2)
  - Osteoporotic fracture [Not Recovered/Not Resolved]
  - Osteoporosis [Unknown]
